FAERS Safety Report 9511211 (Version 1)
Quarter: 2013Q3

REPORT INFORMATION
  Report Type: Spontaneous
  Country: US (occurrence: None)
  Receive Date: 20130909
  Receipt Date: 20130909
  Transmission Date: 20140515
  Serious: Yes (Hospitalization)
  Sender: FDA-Public Use
  Company Number: None

PATIENT
  Age: 75 Year
  Sex: Female
  Weight: 75.3 kg

DRUGS (1)
  1. LATANOPROST [Suspect]
     Indication: GLAUCOMA
     Dates: start: 20130821, end: 20130831

REACTIONS (8)
  - Syncope [None]
  - Acute coronary syndrome [None]
  - Back pain [None]
  - Flushing [None]
  - Nausea [None]
  - Hyperhidrosis [None]
  - Asthenia [None]
  - Local swelling [None]
